FAERS Safety Report 8141940-X (Version None)
Quarter: 2012Q1

REPORT INFORMATION
  Report Type: 
  Country: None (occurrence: None)
  Receive Date: 20120216
  Receipt Date: 20111219
  Transmission Date: 20120608
  Serious: Yes (Other)
  Sender: FDA-Public Use
  Company Number: JP-GLAXOSMITHKLINE-B0773975A

PATIENT
  Sex: Female

DRUGS (6)
  1. HYCAMTIN [Suspect]
     Indication: OVARIAN CANCER
     Dosage: 1.2MGM2 PER DAY
     Route: 042
     Dates: start: 20111212
  2. SOLDEM 3A [Concomitant]
     Dates: start: 20111212, end: 20111216
  3. SEISHOKU [Concomitant]
     Dosage: 4ML PER DAY
     Dates: start: 20111212, end: 20111216
  4. PURSENNID [Concomitant]
     Dosage: 12MG PER DAY
     Dates: start: 20111215, end: 20111217
  5. DECADRON [Concomitant]
     Dates: start: 20111212, end: 20111216
  6. ZOFRAN [Concomitant]
     Dosage: 4MG PER DAY
     Dates: start: 20111214, end: 20111216

REACTIONS (2)
  - VASCULITIS [None]
  - NEUTROPENIA [None]
